FAERS Safety Report 7284282-7 (Version None)
Quarter: 2011Q1

REPORT INFORMATION
  Report Type: 
  Country: None (occurrence: None)
  Receive Date: 20110209
  Receipt Date: 20101013
  Transmission Date: 20110831
  Serious: Yes (Other)
  Sender: FDA-Public Use
  Company Number: MY-NAPPMUNDI-MAG-2010-0001330

PATIENT
  Sex: Male

DRUGS (1)
  1. OXYCODONE HCL [Suspect]
     Indication: CANCER PAIN
     Dosage: 90 MG, BID
     Route: 048

REACTIONS (3)
  - INTESTINAL FUNCTIONAL DISORDER [None]
  - INADEQUATE ANALGESIA [None]
  - MEDICATION RESIDUE [None]
